FAERS Safety Report 5077022-3 (Version None)
Quarter: 2006Q3

REPORT INFORMATION
  Report Type: 
  Country: None (occurrence: None)
  Receive Date: 20060802
  Receipt Date: 20060718
  Transmission Date: 20061208
  Serious: Yes (Other)
  Sender: FDA-Public Use
  Company Number: 2005-02704

PATIENT
  Age: 76 Year
  Sex: Male

DRUGS (8)
  1. IMMUCYST [Suspect]
     Indication: BLADDER CANCER
     Dosage: (81.0 MG) I.VES., BLADDER
     Route: 043
     Dates: start: 20051114, end: 20060105
  2. PROPIVERINE HYDROCHLORIDE [Concomitant]
  3. CEFCAPENE PIVOXIL HYDROCHLORIDE [Concomitant]
  4. TAMSULOSIN HYDROCHLORIDE [Concomitant]
  5. ASPIRIN [Concomitant]
  6. WARFARIN SODIUM [Concomitant]
  7. CILOSTAZOL [Concomitant]
  8. DIPYRIDAMOLE [Concomitant]

REACTIONS (2)
  - MICTURITION DISORDER [None]
  - URINARY RETENTION [None]
